FAERS Safety Report 23714357 (Version 1)
Quarter: 2024Q2

REPORT INFORMATION
  Report Type: Spontaneous
  Country: US (occurrence: None)
  Receive Date: 20240405
  Receipt Date: 20240405
  Transmission Date: 20240715
  Serious: No
  Sender: FDA-Public Use
  Company Number: 2024A071741

PATIENT

DRUGS (1)
  1. TEZEPELUMAB-EKKO [Suspect]
     Active Substance: TEZEPELUMAB-EKKO
     Dosage: UNKNOWN

REACTIONS (3)
  - Arthralgia [Unknown]
  - Oropharyngeal pain [Unknown]
  - Back pain [Unknown]
